FAERS Safety Report 11229677 (Version 5)
Quarter: 2016Q3

REPORT INFORMATION
  Report Type: Spontaneous
  Country: JP (occurrence: JP)
  Receive Date: 20150630
  Receipt Date: 20160902
  Transmission Date: 20161109
  Serious: Yes (Hospitalization)
  Sender: FDA-Public Use
  Company Number: JP-B.I. PHARMACEUTICALS,INC./RIDGEFIELD-2015-BI-34606GD

PATIENT
  Age: 74 Year
  Sex: Female

DRUGS (3)
  1. LANSOPRAZOLE. [Suspect]
     Active Substance: LANSOPRAZOLE
     Indication: OSTEOARTHRITIS
     Route: 048
  2. EDOXABAN [Concomitant]
     Active Substance: EDOXABAN TOSYLATE
     Indication: PRODUCT USED FOR UNKNOWN INDICATION
     Route: 065
  3. MOBIC [Suspect]
     Active Substance: MELOXICAM
     Indication: OSTEOARTHRITIS
     Route: 048

REACTIONS (7)
  - Weight decreased [Unknown]
  - Haemorrhage [Unknown]
  - Oesophageal mucosal tear [Recovered/Resolved]
  - Anaemia [Unknown]
  - Colitis microscopic [Recovered/Resolved]
  - Dehydration [Unknown]
  - Scar [Recovered/Resolved]
